FAERS Safety Report 20632389 (Version 1)
Quarter: 2022Q1

REPORT INFORMATION
  Report Type: Spontaneous
  Country: FR (occurrence: FR)
  Receive Date: 20220324
  Receipt Date: 20220324
  Transmission Date: 20220424
  Serious: Yes (Hospitalization)
  Sender: FDA-Public Use
  Company Number: None

PATIENT
  Age: 71 Year
  Sex: Male
  Weight: 60 kg

DRUGS (8)
  1. BEVACIZUMAB [Suspect]
     Active Substance: BEVACIZUMAB
     Indication: Hepatocellular carcinoma
     Dosage: 15 MG/KG, EVERY 3 WEEKS
     Route: 041
     Dates: start: 202104, end: 20220211
  2. TECENTRIQ [Suspect]
     Active Substance: ATEZOLIZUMAB
     Indication: Hepatocellular carcinoma
     Dosage: 1200 MG, EVERY 3 WEEKS
     Route: 041
     Dates: start: 202104, end: 20220211
  3. METFORMIN\VILDAGLIPTIN [Concomitant]
     Active Substance: METFORMIN\VILDAGLIPTIN
     Dosage: 1 DF, 2X/DAY (IN THE MORNING AND IN THE EVENING)
  4. PRAVASTATIN [Concomitant]
     Active Substance: PRAVASTATIN
     Dosage: 1 DF, 1X/DAY (IN THE EVENING)
  5. ALPRAZOLAM [Concomitant]
     Active Substance: ALPRAZOLAM
     Dosage: 0.5 DF, 3X/DAY (IN THE MORNING, AT NOON AND IN THE EVENING)
  6. IRBESARTAN [Concomitant]
     Active Substance: IRBESARTAN
     Dosage: 1 DF, DAILY
  7. ACETAMINOPHEN [Concomitant]
     Active Substance: ACETAMINOPHEN
     Dosage: 1 DF, 3X/DAY (IN THE MORNING, AT NOON AND IN THE EVENING)
  8. BILASTINE [Concomitant]
     Active Substance: BILASTINE
     Dosage: 1 DF, 1X/DAY (IN THE EVENING)

REACTIONS (1)
  - Interstitial lung disease [Recovering/Resolving]

NARRATIVE: CASE EVENT DATE: 20220228
